FAERS Safety Report 17215495 (Version 1)
Quarter: 2019Q4

REPORT INFORMATION
  Report Type: Report from Study
  Country: US (occurrence: US)
  Receive Date: 20191230
  Receipt Date: 20191230
  Transmission Date: 20200122
  Serious: No
  Sender: FDA-Public Use
  Company Number: US-CLOVIS ONCOLOGY-CLO-2019-002385

PATIENT
  Age: 66 Year
  Sex: Female

DRUGS (2)
  1. RUBRACA [Suspect]
     Active Substance: RUCAPARIB CAMSYLATE
     Dosage: 300 MG, BID
     Route: 048
     Dates: start: 20191113, end: 20191113
  2. RUBRACA [Suspect]
     Active Substance: RUCAPARIB CAMSYLATE
     Indication: OVARIAN CANCER
     Dosage: 600 MG, BID
     Route: 048
     Dates: start: 20191113

REACTIONS (11)
  - Neck mass [Unknown]
  - Abdominal pain upper [Unknown]
  - Abdominal pain [Unknown]
  - Feeling jittery [Unknown]
  - Swelling [Unknown]
  - Feeling hot [Unknown]
  - Abdominal discomfort [Unknown]
  - Dizziness postural [Unknown]
  - Accidental underdose [Unknown]
  - Tremor [Unknown]
  - Nausea [Not Recovered/Not Resolved]

NARRATIVE: CASE EVENT DATE: 201911
